FAERS Safety Report 17105654 (Version 2)
Quarter: 2020Q1

REPORT INFORMATION
  Report Type: Report from Study
  Country: NL (occurrence: NL)
  Receive Date: 20191203
  Receipt Date: 20200116
  Transmission Date: 20200409
  Serious: Yes (Death, Hospitalization, Other)
  Sender: FDA-Public Use
  Company Number: NL-AMGEN-NLDSL2019199640

PATIENT
  Age: 69 Year
  Sex: Female

DRUGS (27)
  1. DEXAMETHASON [DEXAMETHASONE] [Concomitant]
     Active Substance: DEXAMETHASONE
     Dosage: 4 MILLIGRAM
  2. CALCIUM CARBONATE W/VITAMIN D [CALCIUM CARBONATE;COLECALCIFEROL] [Concomitant]
     Active Substance: CALCIUM CARBONATE\CHOLECALCIFEROL
     Dosage: 1,25G/800IE (500MG CA) 3PD2T
  3. COLECALCIFEROL [Concomitant]
     Active Substance: CHOLECALCIFEROL
     Dosage: 25.000IE=1ML (25.000IE/ML) 1PW2A
  4. ONDANSETRON [Concomitant]
     Active Substance: ONDANSETRON
     Dosage: 4 MILLIGRAM
  5. PREGABALINE [Concomitant]
     Active Substance: PREGABALIN
     Dosage: 75 MILLIGRAM, 2D1C
  6. PLANTAGO OVATA [Concomitant]
     Active Substance: HERBALS\PLANTAGO OVATA LEAF
     Dosage: 3,4G 1-3D1SA
  7. FENTANYL. [Concomitant]
     Active Substance: FENTANYL
     Dosage: 75 UG/HR, 1X3D1PL
  8. HYDROCHLOROTHIAZIDE. [Concomitant]
     Active Substance: HYDROCHLOROTHIAZIDE
     Dosage: 12.5 MILLIGRAM, 1D1T
  9. LIDOCAINE. [Concomitant]
     Active Substance: LIDOCAINE
     Dosage: 2D
     Route: 054
  10. PEMBROLIZUMAB. [Concomitant]
     Active Substance: PEMBROLIZUMAB
  11. PEMETREXED. [Concomitant]
     Active Substance: PEMETREXED
  12. MAGNESIUM HYDROXIDE. [Concomitant]
     Active Substance: MAGNESIUM HYDROXIDE
     Dosage: 724 MILLIGRAM, BID
  13. CARBOPLATINE [Concomitant]
     Active Substance: CARBOPLATIN
     Dosage: UNK
  14. DEXAMETHASON [DEXAMETHASONE] [Concomitant]
     Active Substance: DEXAMETHASONE
     Dosage: 0.5 MILLIGRAM, 1D4T
  15. MORPHINE [Concomitant]
     Active Substance: MORPHINE
     Dosage: 10 MILLIGRAM PER MILLILITRE
  16. OXYCODON [Concomitant]
     Active Substance: OXYCODONE
     Dosage: 5 MILLIGRAM, 0-6D1C
  17. AMLODIPINE [Concomitant]
     Active Substance: AMLODIPINE BESYLATE
     Dosage: 5 MILLIGRAM, 1D1T
  18. OLANZAPINE. [Concomitant]
     Active Substance: OLANZAPINE
     Dosage: 10 MILLIGRAM, 1D1T
  19. ONDANSETRON [Concomitant]
     Active Substance: ONDANSETRON
     Dosage: 8 UNK
  20. TERBUTALINE [Concomitant]
     Active Substance: TERBUTALINE
     Dosage: 0.25 MG/DO FL 120DO TURBU, 1-4D1INH
  21. BUDESONIDE. [Concomitant]
     Active Substance: BUDESONIDE
     Dosage: 400UG/DO FL 50DO TURBUHALER, 2D1INH
  22. FENTANYL. [Concomitant]
     Active Substance: FENTANYL
     Dosage: 200 MICROGRAM, 0-6D1T
  23. SIMVASTATINE [Concomitant]
     Active Substance: SIMVASTATIN
     Dosage: 40 MILLIGRAM, 1D1T
  24. XGEVA [Suspect]
     Active Substance: DENOSUMAB
     Indication: PROPHYLAXIS
     Dosage: 120 MILLIGRAM, Q4WK
     Route: 065
     Dates: start: 20191106
  25. HYDROXOCOBALAMINE [Concomitant]
     Active Substance: HYDROXOCOBALAMIN
     Dosage: 500 MICROGRAM PER MILLIGRAM, 1X2M1INJ
  26. CIMETIDINE [Concomitant]
     Active Substance: CIMETIDINE
     Dosage: 400 MILLIGRAM, QD
  27. PARACETAMOL [Concomitant]
     Active Substance: ACETAMINOPHEN
     Dosage: 1000 MILLIGRAM 4PD1T

REACTIONS (4)
  - Blood magnesium decreased [Unknown]
  - Blood calcium decreased [Unknown]
  - Death [Fatal]
  - Fall [Unknown]

NARRATIVE: CASE EVENT DATE: 20191117
